FAERS Safety Report 17293254 (Version 1)
Quarter: 2020Q1

REPORT INFORMATION
  Report Type: Spontaneous
  Country: US (occurrence: US)
  Receive Date: 20200121
  Receipt Date: 20200121
  Transmission Date: 20200409
  Serious: Yes (Other)
  Sender: FDA-Public Use
  Company Number: US-LUPIN PHARMACEUTICALS INC.-2019-08483

PATIENT
  Age: 69 Year
  Sex: Male

DRUGS (1)
  1. HYDROXYCHLOROQUINE [Suspect]
     Active Substance: HYDROXYCHLOROQUINE
     Indication: Q FEVER
     Dosage: 5.44 MILLIGRAM/KILOGRAM, QD, (TOTAL DOSE: 876 GRAMS)
     Route: 065

REACTIONS (2)
  - Retinopathy [Unknown]
  - Product use in unapproved indication [None]
